FAERS Safety Report 5493112-5 (Version None)
Quarter: 2007Q4

REPORT INFORMATION
  Report Type: 
  Country: None (occurrence: None)
  Receive Date: 20071018
  Receipt Date: 20071005
  Transmission Date: 20080405
  Serious: Yes (Life-Threatening, Hospitalization, Disabling)
  Sender: FDA-Public Use
  Company Number: 162500ISR

PATIENT
  Age: 67 Year
  Sex: Male

DRUGS (2)
  1. DOXYCYCLINE [Suspect]
     Dosage: ORAL
     Route: 048
  2. RIMONABANT [Suspect]
     Indication: WEIGHT CONTROL
     Dosage: ORAL
     Route: 048

REACTIONS (6)
  - COUGH [None]
  - DERMATITIS EXFOLIATIVE [None]
  - DRUG INTERACTION [None]
  - DYSPNOEA [None]
  - RENAL FAILURE ACUTE [None]
  - TOXIC SHOCK SYNDROME [None]
